FAERS Safety Report 16367684 (Version 1)
Quarter: 2019Q2

REPORT INFORMATION
  Report Type: Spontaneous
  Country: US (occurrence: US)
  Receive Date: 20190423
  Receipt Date: 20190423
  Transmission Date: 20190711
  Serious: Yes (Other)
  Sender: FDA-Public Use
  Company Number: None

PATIENT
  Age: 66 Year

DRUGS (2)
  1. BUPROPION ER 150MG TAB DR [Suspect]
     Active Substance: BUPROPION
     Indication: ANXIETY
     Dates: start: 20181111, end: 20190129
  2. BUPROPION ER 150MG TAB DR [Suspect]
     Active Substance: BUPROPION
     Indication: DEPRESSION
     Dates: start: 20181111, end: 20190129

REACTIONS (4)
  - Anxiety [None]
  - Drug ineffective [None]
  - Product substitution issue [None]
  - Product odour abnormal [None]

NARRATIVE: CASE EVENT DATE: 20181108
